FAERS Safety Report 15399773 (Version 1)
Quarter: 2018Q3

REPORT INFORMATION
  Report Type: Spontaneous
  Country: US (occurrence: US)
  Receive Date: 20180918
  Receipt Date: 20180918
  Transmission Date: 20181010
  Serious: No
  Sender: FDA-Public Use
  Company Number: US-ASTRAZENECA-2018SF17338

PATIENT
  Sex: Female
  Weight: 49.4 kg

DRUGS (1)
  1. TUDORZA PRESSAIR [Suspect]
     Active Substance: ACLIDINIUM BROMIDE
     Indication: CHRONIC OBSTRUCTIVE PULMONARY DISEASE
     Dosage: 400MCG, ONE PUFF IN THE MORNING AND ONE PUFF AT NIGHT
     Route: 055
     Dates: start: 201610

REACTIONS (4)
  - Device malfunction [Unknown]
  - Amnesia [Unknown]
  - Hypoacusis [Unknown]
  - Visual impairment [Unknown]
